FAERS Safety Report 18737288 (Version 1)
Quarter: 2021Q1

REPORT INFORMATION
  Report Type: Spontaneous
  Country: US (occurrence: US)
  Receive Date: 20210113
  Receipt Date: 20210113
  Transmission Date: 20210419
  Serious: Yes (Death)
  Sender: FDA-Public Use
  Company Number: US-SPECGX-T202002409

PATIENT
  Age: 10 Year
  Sex: Female

DRUGS (1)
  1. METHADONE [Suspect]
     Active Substance: METHADONE HYDROCHLORIDE
     Indication: PRODUCT USED FOR UNKNOWN INDICATION
     Dosage: UNK, TWICE
     Route: 048

REACTIONS (7)
  - Brain injury [Fatal]
  - Unresponsive to stimuli [Fatal]
  - Toxicity to various agents [Fatal]
  - Medication error [Fatal]
  - Acute respiratory distress syndrome [Fatal]
  - Diabetes insipidus [Fatal]
  - Product use issue [Fatal]

NARRATIVE: CASE EVENT DATE: 2019
